FAERS Safety Report 12226710 (Version 2)
Quarter: 2016Q2

REPORT INFORMATION
  Report Type: Spontaneous
  Country: US (occurrence: US)
  Receive Date: 20160331
  Receipt Date: 20160408
  Transmission Date: 20160815
  Serious: No
  Sender: FDA-Public Use
  Company Number: US-MDT-ADR-2016-00601

PATIENT
  Age: 31 Year
  Sex: Male

DRUGS (13)
  1. MIRALAX [Suspect]
     Active Substance: POLYETHYLENE GLYCOL 3350
     Dosage: 17G/DOSE
     Route: 048
  2. LIDOCAINE 5% [Suspect]
     Active Substance: LIDOCAINE
     Dosage: 700 MG/PATCH
     Route: 062
  3. FLEET ENEMA [Suspect]
     Active Substance: SODIUM PHOSPHATE, DIBASIC\SODIUM PHOSPHATE, MONOBASIC
     Indication: CONSTIPATION
     Dosage: 133 ML
     Route: 054
  4. LIORESAL [Suspect]
     Active Substance: BACLOFEN
     Dosage: 20 MG
     Route: 048
  5. MAGNESIUM HYDROXIDE. [Suspect]
     Active Substance: MAGNESIUM HYDROXIDE
     Route: 048
  6. TIZANIDINE. [Suspect]
     Active Substance: TIZANIDINE
     Indication: MUSCLE SPASTICITY
     Dosage: 4 MG
     Route: 048
  7. LIORESAL [Suspect]
     Active Substance: BACLOFEN
     Indication: MUSCLE SPASTICITY
     Dosage: 290.4MCG/DAY
     Route: 037
     Dates: end: 20160322
  8. LIORESAL [Suspect]
     Active Substance: BACLOFEN
     Dosage: 10 MG
     Route: 048
  9. CELEBREX [Suspect]
     Active Substance: CELECOXIB
     Dosage: 100 MG
     Route: 048
  10. COLACE [Suspect]
     Active Substance: DOCUSATE SODIUM
     Dosage: 100 MG
     Route: 048
  11. TYLENOL [Suspect]
     Active Substance: ACETAMINOPHEN
     Dosage: 500 MG
     Route: 048
  12. EX-LAX REGULAR STRENGTH STIMULANT LAXATIVE [Suspect]
     Active Substance: SENNOSIDES
     Dosage: 15 MG
     Route: 048
  13. LIORESAL [Suspect]
     Active Substance: BACLOFEN
     Indication: MUSCLE SPASTICITY
     Dosage: 304.9 MCG/DAY
     Route: 037
     Dates: start: 20160322

REACTIONS (18)
  - Muscle tightness [Unknown]
  - Fall [Unknown]
  - Pelvic floor dyssynergia [Unknown]
  - Nasopharyngitis [Unknown]
  - Asthenia [Unknown]
  - Anal incontinence [Unknown]
  - Gait disturbance [Unknown]
  - Musculoskeletal stiffness [Unknown]
  - Movement disorder [Unknown]
  - Pain [Unknown]
  - Constipation [Unknown]
  - Hypertonia [Unknown]
  - Faecaloma [Unknown]
  - Defaecation urgency [Unknown]
  - Muscle spasticity [Unknown]
  - Performance status decreased [Unknown]
  - Muscle spasms [Unknown]
  - Diplegia [Unknown]

NARRATIVE: CASE EVENT DATE: 20141231
